FAERS Safety Report 8942144 (Version 1)
Quarter: 2012Q4

REPORT INFORMATION
  Report Type: 
  Country: DE (occurrence: DE)
  Receive Date: 20121130
  Receipt Date: 20121130
  Transmission Date: 20130627
  Serious: Yes (Death)
  Sender: FDA-Public Use
  Company Number: DE-GLAXOSMITHKLINE-D0077935A

PATIENT
  Sex: Male

DRUGS (4)
  1. VOTRIENT [Suspect]
     Indication: METASTATIC RENAL CELL CARCINOMA
     Dosage: 200MG Twice per day
     Route: 048
     Dates: start: 20120917, end: 20121003
  2. PANTOZOL [Concomitant]
     Dosage: 40MG Unknown
     Route: 048
  3. BELOC ZOK [Concomitant]
     Indication: HYPERTENSION
     Route: 048
  4. DUROGESIC [Concomitant]
     Dosage: 25UGH Every 3 days
     Route: 062

REACTIONS (2)
  - Pancytopenia [Fatal]
  - Skin ulcer [Fatal]
